FAERS Safety Report 21544691 (Version 1)
Quarter: 2022Q4

REPORT INFORMATION
  Report Type: Spontaneous
  Country: CN (occurrence: CN)
  Receive Date: 20221102
  Receipt Date: 20221102
  Transmission Date: 20230113
  Serious: Yes (Hospitalization, Other)
  Sender: FDA-Public Use
  Company Number: CN-009507513-2211CHN000542

PATIENT
  Age: 53 Year
  Sex: Female
  Weight: 83 kg

DRUGS (3)
  1. JANUVIA [Suspect]
     Active Substance: SITAGLIPTIN PHOSPHATE
     Indication: Diabetes mellitus
     Dosage: 100MG, QD
     Route: 048
     Dates: start: 20220904, end: 20221014
  2. ADALAT [Suspect]
     Active Substance: NIFEDIPINE
     Indication: Hypertension
     Dosage: 30MG, BID
     Route: 048
     Dates: start: 20220904, end: 20221014
  3. GLICLAZIDE [Suspect]
     Active Substance: GLICLAZIDE
     Indication: Diabetes mellitus
     Dosage: 60MG, QD
     Route: 048
     Dates: start: 20220904, end: 20221014

REACTIONS (8)
  - Ileus paralytic [Recovering/Resolving]
  - Haematochezia [Unknown]
  - Pollakiuria [Unknown]
  - Micturition urgency [Unknown]
  - Urinary tract obstruction [Unknown]
  - Dizziness [Unknown]
  - Asthenia [Unknown]
  - Decreased appetite [Unknown]

NARRATIVE: CASE EVENT DATE: 20221016
